FAERS Safety Report 9477305 (Version 2)
Quarter: 2013Q3

REPORT INFORMATION
  Report Type: Report from Study
  Country: NL (occurrence: NL)
  Receive Date: 20130826
  Receipt Date: 20130826
  Transmission Date: 20140515
  Serious: Yes (Death)
  Sender: FDA-Public Use
  Company Number: NL-ABBOTT-12P-114-0889748-00

PATIENT
  Age: 82 Year
  Sex: Male
  Weight: 75.5 kg

DRUGS (4)
  1. LUCRIN DEPOT 11.25 MG [Suspect]
     Indication: PROSTATE CANCER
     Route: 058
     Dates: start: 20110422, end: 20121125
  2. ACETYLSALICYLZUUR [Concomitant]
     Indication: ISCHAEMIC HEART DISEASE PROPHYLAXIS
     Route: 048
     Dates: end: 20121125
  3. NIFEDIPINE [Concomitant]
     Indication: HYPERTENSION
     Dates: end: 20121125
  4. SIMVASTATIN [Concomitant]
     Indication: HYPERCHOLESTEROLAEMIA
     Dates: end: 20121125

REACTIONS (3)
  - Fatigue [Fatal]
  - Depressed mood [Fatal]
  - Restlessness [Fatal]
